FAERS Safety Report 6892882-9 (Version None)
Quarter: 2010Q3

REPORT INFORMATION
  Report Type: 
  Country: None (occurrence: None)
  Receive Date: 20100731
  Receipt Date: 20081029
  Transmission Date: 20110219
  Serious: No
  Sender: FDA-Public Use
  Company Number: US-PFIZER INC-2008091965

PATIENT
  Sex: Female

DRUGS (1)
  1. DEPO-MEDROL [Suspect]
     Indication: COMPLEX REGIONAL PAIN SYNDROME
     Route: 030
     Dates: start: 20060101

REACTIONS (2)
  - INTENTIONAL DRUG MISUSE [None]
  - INTRAOCULAR PRESSURE INCREASED [None]
